FAERS Safety Report 10994404 (Version 3)
Quarter: 2015Q2

REPORT INFORMATION
  Report Type: Spontaneous
  Country: JP (occurrence: JP)
  Receive Date: 20150407
  Receipt Date: 20150512
  Transmission Date: 20150821
  Serious: Yes (Hospitalization)
  Sender: FDA-Public Use
  Company Number: JP-ELI_LILLY_AND_COMPANY-JP201503009980

PATIENT
  Age: 76 Year
  Sex: Female

DRUGS (12)
  1. EPADEL                             /01682401/ [Concomitant]
     Active Substance: ETHYL ICOSAPENTATE\ICOSAPENT
  2. LIPIDIL [Concomitant]
     Active Substance: FENOFIBRATE
  3. JUVELA N [Concomitant]
     Active Substance: TOCOPHERYL NICOTINATE, D-.ALPHA.
  4. TAKEPRON [Concomitant]
     Active Substance: LANSOPRAZOLE
  5. TERNELIN [Concomitant]
     Active Substance: TIZANIDINE
  6. ALLOPURINOL. [Concomitant]
     Active Substance: ALLOPURINOL
  7. CINAL [Concomitant]
     Active Substance: ASCORBIC ACID\CALCIUM PANTOTHENATE
     Route: 048
  8. FORTEO [Suspect]
     Active Substance: TERIPARATIDE
     Indication: OSTEOPOROSIS
     Dosage: 20 UG, QD
     Route: 058
     Dates: start: 2011, end: 2014
  9. METHYCOBAL [Concomitant]
     Active Substance: METHYLCOBALAMIN
  10. SANCOBA [Concomitant]
     Active Substance: CYANOCOBALAMIN
  11. AZILVA [Concomitant]
     Active Substance: AZILSARTAN KAMEDOXOMIL
     Dosage: UNK
     Route: 048
     Dates: start: 20150129
  12. THYRADIN S [Concomitant]
     Active Substance: LEVOTHYROXINE SODIUM

REACTIONS (3)
  - Renal impairment [Unknown]
  - Femoral neck fracture [Unknown]
  - Incorrect drug administration duration [Recovered/Resolved]

NARRATIVE: CASE EVENT DATE: 2014
